FAERS Safety Report 4394225-1 (Version None)
Quarter: 2004Q3

REPORT INFORMATION
  Report Type: 
  Country: None (occurrence: None)
  Receive Date: 20040712
  Receipt Date: 20040630
  Transmission Date: 20050211
  Serious: Yes (Other)
  Sender: FDA-Public Use
  Company Number: PHEH2004US07177

PATIENT
  Age: 54 Year
  Sex: Female

DRUGS (1)
  1. ZOMETA [Suspect]
     Indication: METASTASES TO BONE
     Route: 042
     Dates: start: 20020101

REACTIONS (4)
  - BONE OPERATION [None]
  - FOOT FRACTURE [None]
  - IMPAIRED HEALING [None]
  - PATHOLOGICAL FRACTURE [None]
